FAERS Safety Report 8491801-1 (Version None)
Quarter: 2012Q3

REPORT INFORMATION
  Report Type: 
  Country: None (occurrence: None)
  Receive Date: 20120706
  Receipt Date: 20120626
  Transmission Date: 20120928
  Serious: Yes (Hospitalization)
  Sender: FDA-Public Use
  Company Number: BE-FRI-1000030976

PATIENT
  Sex: Male

DRUGS (3)
  1. ESCITALOPRAM [Suspect]
     Indication: ANXIETY
     Dosage: 5 MG
     Route: 048
     Dates: start: 20120420, end: 20120504
  2. ESCITALOPRAM [Suspect]
     Dates: start: 20120625
  3. SYMBICORT [Concomitant]
     Indication: ASTHMA
     Dosage: 2 DF

REACTIONS (1)
  - CONVULSION [None]
